FAERS Safety Report 18835723 (Version 1)
Quarter: 2021Q1

REPORT INFORMATION
  Report Type: Spontaneous
  Country: US (occurrence: US)
  Receive Date: 20210203
  Receipt Date: 20210203
  Transmission Date: 20210419
  Serious: No
  Sender: FDA-Public Use
  Company Number: US-ALLERGAN-2002203US

PATIENT
  Age: 69 Year
  Sex: Female

DRUGS (2)
  1. DYSPORT [Concomitant]
     Active Substance: ABOBOTULINUMTOXINA
     Indication: SKIN WRINKLING
  2. BOTOX COSMETIC [Suspect]
     Active Substance: ONABOTULINUMTOXINA
     Indication: SKIN WRINKLING
     Dosage: 36 UNITS, SINGLE

REACTIONS (2)
  - Off label use [Unknown]
  - Drug ineffective [Unknown]
